FAERS Safety Report 4502631-7 (Version None)
Quarter: 2004Q4

REPORT INFORMATION
  Report Type: 
  Country: None (occurrence: None)
  Receive Date: 20040928
  Receipt Date: 20040601
  Transmission Date: 20050328
  Serious: No
  Sender: FDA-Public Use
  Company Number: 04P-163-0262617-00

PATIENT
  Age: 62 Year
  Sex: Female
  Weight: 68.0396 kg

DRUGS (8)
  1. HUMIRA [Suspect]
     Indication: RHEUMATOID ARTHRITIS
     Dosage: 40 MG, 1 IN 2 WK, SUBCUTANEOUS
     Route: 058
     Dates: start: 20040101
  2. AMITRIPTILINE [Concomitant]
  3. METHOTREXATE [Concomitant]
  4. VICODIN [Concomitant]
  5. QUINIDINE HCL [Concomitant]
  6. FOLIC ACID [Concomitant]
  7. TOCOPHEROL CONCENTRATE CAP [Concomitant]
  8. LISINOPRIL [Concomitant]

REACTIONS (2)
  - BLOOD URINE [None]
  - PROTEIN URINE [None]
